FAERS Safety Report 7872241-2 (Version None)
Quarter: 2011Q4

REPORT INFORMATION
  Report Type: 
  Country: None (occurrence: None)
  Receive Date: 20111029
  Receipt Date: 20110316
  Transmission Date: 20120403
  Serious: No
  Sender: FDA-Public Use
  Company Number: US-AMGEN-USASP2011014495

PATIENT
  Sex: Female

DRUGS (3)
  1. GOLIMUMAB [Concomitant]
  2. ENBREL [Suspect]
     Indication: RHEUMATOID ARTHRITIS
     Dosage: 50 MG, QWK
     Dates: start: 20050101
  3. HUMIRA [Concomitant]

REACTIONS (4)
  - RASH [None]
  - DRUG INEFFECTIVE [None]
  - PAIN IN EXTREMITY [None]
  - SINUSITIS [None]
